FAERS Safety Report 18870080 (Version 1)
Quarter: 2021Q1

REPORT INFORMATION
  Report Type: Spontaneous
  Country: US (occurrence: US)
  Receive Date: 20210209
  Receipt Date: 20210209
  Transmission Date: 20210420
  Serious: Yes (Other)
  Sender: FDA-Public Use
  Company Number: US-ASTRAZENECA-2021A032282

PATIENT
  Sex: Female

DRUGS (2)
  1. PLATINUM [Concomitant]
     Active Substance: PLATINUM
     Indication: CHEMOTHERAPY
  2. LYNPARZA [Suspect]
     Active Substance: OLAPARIB
     Indication: OVARIAN CANCER
     Dosage: DOSE AND FREQUENCY UNKNOWN
     Route: 048

REACTIONS (2)
  - Ovarian cancer recurrent [Unknown]
  - Malignant neoplasm progression [Unknown]
